FAERS Safety Report 8845218 (Version 2)
Quarter: 2012Q4

REPORT INFORMATION
  Report Type: Spontaneous
  Country: JP (occurrence: None)
  Receive Date: 20121015
  Receipt Date: 20121026
  Transmission Date: 20130627
  Serious: Yes (Death, Hospitalization, Other)
  Sender: FDA-Public Use
  Company Number: AXC-2012-000448

PATIENT
  Sex: Female

DRUGS (3)
  1. URSODEOXYCHOLIC ACID [Suspect]
     Indication: BILIARY CIRRHOSIS PRIMARY
     Dosage: , Oral
     Route: 048
  2. GLOBULIN [Concomitant]
  3. ATIII (ANTITHROMBIN III) [Concomitant]

REACTIONS (17)
  - Herpes virus infection [None]
  - Coma hepatic [None]
  - Continuous haemodiafiltration [None]
  - Systemic lupus erythematosus [None]
  - Platelet count decreased [None]
  - Oedema peripheral [None]
  - Anaemia [None]
  - Gastrointestinal haemorrhage [None]
  - Pneumonia [None]
  - Hepatic cirrhosis [None]
  - Coagulopathy [None]
  - Coma hepatic [None]
  - Depressed level of consciousness [None]
  - Abdominal distension [None]
  - Ocular icterus [None]
  - Ascites [None]
  - Fungal infection [None]
